FAERS Safety Report 9683735 (Version 1)
Quarter: 2013Q4

REPORT INFORMATION
  Report Type: Spontaneous
  Country: US (occurrence: US)
  Receive Date: 20131112
  Receipt Date: 20131112
  Transmission Date: 20140711
  Serious: Yes (Other)
  Sender: FDA-Public Use
  Company Number: US-FRI-1000050864

PATIENT
  Sex: Male

DRUGS (1)
  1. LINZESS [Suspect]

REACTIONS (3)
  - Renal impairment [Unknown]
  - Pyruvate kinase increased [Unknown]
  - Confusional state [Unknown]
